FAERS Safety Report 16747622 (Version 1)
Quarter: 2019Q3

REPORT INFORMATION
  Report Type: Spontaneous
  Country: DE (occurrence: DE)
  Receive Date: 20190827
  Receipt Date: 20190827
  Transmission Date: 20191005
  Serious: Yes (Hospitalization)
  Sender: FDA-Public Use
  Company Number: DE-TEVA-2019-DE-1096934

PATIENT
  Age: 86 Year
  Sex: Female

DRUGS (2)
  1. TORASEMIDE [Suspect]
     Active Substance: TORSEMIDE
     Dosage: 5 MG, 1-0-0-0
     Route: 065
  2. METOPROLOL. [Concomitant]
     Active Substance: METOPROLOL
     Dosage: 50 MG, 2-0-1-0
     Route: 065

REACTIONS (4)
  - Accidental overdose [Unknown]
  - Diarrhoea [Unknown]
  - Dehydration [Unknown]
  - Muscular weakness [Unknown]
